FAERS Safety Report 16904312 (Version 1)
Quarter: 2019Q4

REPORT INFORMATION
  Report Type: Other
  Country: LU (occurrence: LU)
  Receive Date: 20191010
  Receipt Date: 20191010
  Transmission Date: 20200122
  Serious: Yes (Hospitalization, Other)
  Sender: FDA-Public Use
  Company Number: LU-ASTELLAS-2019US039466

PATIENT
  Age: 73 Year
  Sex: Male
  Weight: 60 kg

DRUGS (2)
  1. BISOPROLOL                         /00802602/ [Interacting]
     Active Substance: BISOPROLOL
     Indication: HYPERTENSION
     Route: 048
  2. XTANDI [Suspect]
     Active Substance: ENZALUTAMIDE
     Indication: PROSTATE CANCER
     Dosage: 160 MG (4 DF/ CAPSULES), ONCE DAILY
     Route: 048
     Dates: start: 201907

REACTIONS (5)
  - Drug interaction [Not Recovered/Not Resolved]
  - Ischaemic cardiomyopathy [Not Recovered/Not Resolved]
  - Mitral valve incompetence [Not Recovered/Not Resolved]
  - Cardiac failure [Not Recovered/Not Resolved]
  - Aortic stenosis [Not Recovered/Not Resolved]

NARRATIVE: CASE EVENT DATE: 20190914
